FAERS Safety Report 14162521 (Version 3)
Quarter: 2018Q4

REPORT INFORMATION
  Report Type: Spontaneous
  Country: US (occurrence: US)
  Receive Date: 20171106
  Receipt Date: 20181029
  Transmission Date: 20190204
  Serious: No
  Sender: FDA-Public Use
  Company Number: US-PFIZER INC-2017347467

PATIENT
  Age: 14 Year
  Sex: Male
  Weight: 59.9 kg

DRUGS (4)
  1. GENOTROPIN [Suspect]
     Active Substance: SOMATROPIN
     Indication: GROWTH HORMONE DEFICIENCY
     Dosage: 2.5 MG, DAILY (6 DAYS/WEEK)
     Dates: start: 20161029
  2. GENOTROPIN [Suspect]
     Active Substance: SOMATROPIN
     Dosage: 2.6 MG, DAILY (6 DAYS A WEEK)
     Dates: start: 20161023
  3. GENOTROPIN [Suspect]
     Active Substance: SOMATROPIN
     Dosage: 2.4 MG, ALTERNATE DAY
  4. GENOTROPIN [Suspect]
     Active Substance: SOMATROPIN
     Dosage: 2.6 MG, ALTERNATE DAY (6 DAYS A WEEK)

REACTIONS (9)
  - Headache [Recovered/Resolved]
  - Blood creatinine decreased [Unknown]
  - Blood calcium decreased [Unknown]
  - Fatigue [Recovering/Resolving]
  - Renin increased [Unknown]
  - Blood 25-hydroxycholecalciferol decreased [Unknown]
  - Hypothyroidism [Unknown]
  - Blood insulin increased [Unknown]
  - Product prescribing error [Unknown]
